FAERS Safety Report 10056688 (Version 2)
Quarter: 2014Q2

REPORT INFORMATION
  Report Type: Spontaneous
  Country: ES (occurrence: ES)
  Receive Date: 20140403
  Receipt Date: 20140507
  Transmission Date: 20141212
  Serious: Yes (Hospitalization)
  Sender: FDA-Public Use
  Company Number: PHHY2014ES040157

PATIENT
  Age: 92 Year
  Sex: Female

DRUGS (1)
  1. EXELON PATCH [Suspect]
     Dosage: 9.5 MG ONCE DAILY
     Route: 062

REACTIONS (2)
  - Pneumonia [Recovered/Resolved]
  - Expired product administered [Unknown]
